FAERS Safety Report 7542042-3 (Version None)
Quarter: 2011Q2

REPORT INFORMATION
  Report Type: 
  Country: None (occurrence: None)
  Receive Date: 20110613
  Receipt Date: 20110530
  Transmission Date: 20111010
  Serious: Yes (Hospitalization)
  Sender: FDA-Public Use
  Company Number: FR-JNJFOC-20110603002

PATIENT
  Sex: Female

DRUGS (7)
  1. BISOPROLOL FUMARATE AND HYDROCHLOROTHIAZIDE [Concomitant]
  2. ACETAMINOPHEN AND TRAMADOL HCL [Suspect]
     Indication: PAIN
     Route: 048
     Dates: start: 20101227, end: 20110101
  3. TANAKAN [Concomitant]
     Route: 065
  4. PRIMPERAN TAB [Concomitant]
     Route: 065
  5. FUROSEMIDE [Concomitant]
  6. DEBRIDAT [Concomitant]
  7. EXELON [Concomitant]
     Route: 065

REACTIONS (5)
  - URINARY RETENTION [None]
  - HYPOCALCAEMIA [None]
  - HALLUCINATION [None]
  - HYPOKALAEMIA [None]
  - CONFUSIONAL STATE [None]
